FAERS Safety Report 19052749 (Version 1)
Quarter: 2021Q1

REPORT INFORMATION
  Report Type: Other
  Country: US (occurrence: US)
  Receive Date: 20210325
  Receipt Date: 20210325
  Transmission Date: 20210420
  Serious: Yes (Hospitalization, Other)
  Sender: FDA-Public Use
  Company Number: US-ROCHE-2168606

PATIENT
  Age: 60 Year
  Sex: Female

DRUGS (5)
  1. LEMTRADA [Suspect]
     Active Substance: ALEMTUZUMAB
     Indication: MULTIPLE SCLEROSIS
     Route: 041
     Dates: start: 20150325, end: 20150327
  2. LEMTRADA [Suspect]
     Active Substance: ALEMTUZUMAB
     Route: 041
     Dates: start: 20160316, end: 20160318
  3. MAYZENT [Concomitant]
     Active Substance: SIPONIMOD
  4. OCREVUS [Suspect]
     Active Substance: OCRELIZUMAB
     Indication: MULTIPLE SCLEROSIS
     Route: 065
     Dates: start: 20180706
  5. OCREVUS [Suspect]
     Active Substance: OCRELIZUMAB
     Route: 065
     Dates: start: 20180712

REACTIONS (19)
  - Secretion discharge [Recovered/Resolved]
  - Fluid retention [Recovered/Resolved]
  - Conversion disorder [Recovered/Resolved]
  - Abdominal discomfort [Unknown]
  - Pancreatitis [Unknown]
  - Internal haemorrhage [Recovered/Resolved]
  - Disturbance in attention [Not Recovered/Not Resolved]
  - Impaired driving ability [Not Recovered/Not Resolved]
  - Weight increased [Unknown]
  - Nausea [Unknown]
  - Back pain [Recovered/Resolved]
  - Faeces discoloured [Recovered/Resolved]
  - Pyrexia [Not Recovered/Not Resolved]
  - Vomiting [Recovered/Resolved]
  - Diarrhoea [Recovered/Resolved]
  - Swelling [Unknown]
  - Oesophageal haemorrhage [Unknown]
  - Hypertension [Unknown]
  - Memory impairment [Not Recovered/Not Resolved]

NARRATIVE: CASE EVENT DATE: 202003
